FAERS Safety Report 21810304 (Version 9)
Quarter: 2025Q1

REPORT INFORMATION
  Report Type: Report from Study
  Country: DE (occurrence: DE)
  Receive Date: 20230103
  Receipt Date: 20250130
  Transmission Date: 20250409
  Serious: Yes (Other)
  Sender: NOVARTIS
  Company Number: DE-002147023-NVSC2022DE290147

PATIENT
  Age: 4 Year
  Sex: Female
  Weight: 22 kg

DRUGS (10)
  1. ILARIS [Suspect]
     Active Substance: CANAKINUMAB
     Indication: Cryopyrin associated periodic syndrome
     Route: 058
     Dates: start: 20200121
  2. ILARIS [Suspect]
     Active Substance: CANAKINUMAB
     Route: 065
     Dates: start: 20220615
  3. COLCHICINE [Suspect]
     Active Substance: COLCHICINE
     Indication: Cryopyrin associated periodic syndrome
     Dosage: 0.5 MG, BID
     Route: 048
  4. COLCHICINE [Suspect]
     Active Substance: COLCHICINE
     Route: 048
     Dates: start: 20180613
  5. COLCHICINE [Suspect]
     Active Substance: COLCHICINE
     Route: 048
     Dates: start: 20220711, end: 20220715
  6. COLCHICINE [Suspect]
     Active Substance: COLCHICINE
     Dosage: 0.75 MG, BID (MORNING AND EVENING)
     Route: 048
     Dates: start: 20220715
  7. COLCHICINE [Suspect]
     Active Substance: COLCHICINE
     Dosage: 1.5 MG, QD
     Route: 065
  8. IBUPROFEN [Concomitant]
     Active Substance: IBUPROFEN
     Indication: Product used for unknown indication
     Route: 065
     Dates: start: 20240223, end: 20240228
  9. ACETAMINOPHEN [Concomitant]
     Active Substance: ACETAMINOPHEN
     Indication: Product used for unknown indication
     Route: 065
     Dates: start: 20240223, end: 20240228
  10. CEFACLOR [Concomitant]
     Active Substance: CEFACLOR
     Indication: Product used for unknown indication
     Route: 065
     Dates: start: 20240223, end: 20240228

REACTIONS (9)
  - Condition aggravated [Recovered/Resolved]
  - Cryopyrin associated periodic syndrome [Recovered/Resolved]
  - Pyrexia [Recovered/Resolved]
  - Fatigue [Recovered/Resolved]
  - Diarrhoea [Recovered/Resolved]
  - Lymphadenopathy [Recovered/Resolved]
  - Erythema [Recovered/Resolved]
  - Condition aggravated [Recovered/Resolved]
  - Infection [Recovered/Resolved]

NARRATIVE: CASE EVENT DATE: 20220712
